FAERS Safety Report 15353443 (Version 1)
Quarter: 2018Q3

REPORT INFORMATION
  Report Type: Spontaneous
  Country: IN (occurrence: IN)
  Receive Date: 20180905
  Receipt Date: 20180905
  Transmission Date: 20181010
  Serious: Yes (Other)
  Sender: FDA-Public Use
  Company Number: IN-MYLANLABS-2018M1064855

PATIENT
  Age: 35 Year
  Sex: Female

DRUGS (3)
  1. PROPRANOLOL [Suspect]
     Active Substance: PROPRANOLOL HYDROCHLORIDE
     Indication: PORTAL HYPERTENSION
     Dosage: 5 MG, QD
     Route: 065
  2. BETAMETHASONE. [Suspect]
     Active Substance: BETAMETHASONE
     Indication: PRODUCT USED FOR UNKNOWN INDICATION
     Dosage: 12 MG, TWO DOSES 24 HOURS APART
     Route: 065
  3. METHYLDOPA. [Suspect]
     Active Substance: METHYLDOPA
     Indication: PRE-ECLAMPSIA
     Dosage: 500 MG, TID
     Route: 065

REACTIONS (2)
  - Maternal exposure during pregnancy [Recovered/Resolved]
  - Foetal growth restriction [Unknown]
